FAERS Safety Report 18770809 (Version 2)
Quarter: 2021Q1

REPORT INFORMATION
  Report Type: Spontaneous
  Country: CA (occurrence: CA)
  Receive Date: 20210122
  Receipt Date: 20210212
  Transmission Date: 20210419
  Serious: Yes (Hospitalization, Disabling)
  Sender: FDA-Public Use
  Company Number: CA-ASTRAZENECA-2021A009798

PATIENT
  Age: 48 Year
  Sex: Female
  Weight: 104.3 kg

DRUGS (25)
  1. FORXIGA [Suspect]
     Active Substance: DAPAGLIFLOZIN
     Indication: DIABETES MELLITUS
     Dosage: 10.0MG UNKNOWN
     Route: 048
     Dates: start: 201711, end: 20201121
  2. ROSUVASTATIN. [Concomitant]
     Active Substance: ROSUVASTATIN
     Indication: LIPIDS INCREASED
     Dosage: 10 MG DAILY
     Route: 048
     Dates: start: 201712, end: 20201121
  3. HYDROMORPHONE [Concomitant]
     Active Substance: HYDROMORPHONE
  4. METFORMIN [Concomitant]
     Active Substance: METFORMIN HYDROCHLORIDE
     Indication: DIABETES MELLITUS
     Route: 048
     Dates: start: 201709, end: 20201121
  5. TRAJENTA [Concomitant]
     Active Substance: LINAGLIPTIN
     Dosage: 5 MG DAILY
  6. VERAPAMIL [Concomitant]
     Active Substance: VERAPAMIL HYDROCHLORIDE
  7. FLUTICASONE FUROATE [Concomitant]
     Active Substance: FLUTICASONE FUROATE
     Dosage: 27.5 MCG NASAL SPRAY
  8. NITROGLYCERINE [Concomitant]
     Active Substance: NITROGLYCERIN
  9. LIDOCAINE. [Concomitant]
     Active Substance: LIDOCAINE
  10. LINAGLIPTIN [Concomitant]
     Active Substance: LINAGLIPTIN
     Dosage: 5 MG DAILY
  11. DOMPERIDONE [Concomitant]
     Active Substance: DOMPERIDONE
     Dosage: 10 MG WITH MEALS
  12. ZOFRAN [Concomitant]
     Active Substance: ONDANSETRON HYDROCHLORIDE
  13. FENTANYL. [Concomitant]
     Active Substance: FENTANYL
  14. HEPARIN [Concomitant]
     Active Substance: HEPARIN SODIUM
  15. BISOPROLOL [Concomitant]
     Active Substance: BISOPROLOL
     Dosage: 2.5 MG
  16. SPIRONOLACTONE. [Concomitant]
     Active Substance: SPIRONOLACTONE
  17. FUROSEMIDE. [Concomitant]
     Active Substance: FUROSEMIDE
     Dosage: 20 MG AS NEEDED.
  18. DOMPERIDONE [Concomitant]
     Active Substance: DOMPERIDONE
     Dosage: 10 MG WITH MEALS
  19. CRESTOR [Concomitant]
     Active Substance: ROSUVASTATIN CALCIUM
  20. ENTRESTO [Concomitant]
     Active Substance: SACUBITRIL\VALSARTAN
     Dosage: 24/26 MG TWICE DAILY
  21. ACETYLSALICYLIC ACID [Concomitant]
     Active Substance: ASPIRIN
     Dosage: 81 MG
     Route: 048
  22. TELMISARTAN. [Concomitant]
     Active Substance: TELMISARTAN
     Indication: HYPERTENSION
     Dosage: 40 MG DAILY
     Route: 048
     Dates: start: 201806, end: 20201121
  23. HYDROMORPHONE [Concomitant]
     Active Substance: HYDROMORPHONE
  24. ONGLYZA [Concomitant]
     Active Substance: SAXAGLIPTIN HYDROCHLORIDE
  25. VERSED [Concomitant]
     Active Substance: MIDAZOLAM HYDROCHLORIDE

REACTIONS (7)
  - Nausea [Unknown]
  - Hypomagnesaemia [Unknown]
  - Hyperkalaemia [Unknown]
  - Cardiomyopathy [Unknown]
  - Vomiting [Unknown]
  - Staphylococcal sepsis [Unknown]
  - Dehydration [Unknown]

NARRATIVE: CASE EVENT DATE: 202010
